FAERS Safety Report 10419323 (Version 1)
Quarter: 2014Q2

REPORT INFORMATION
  Report Type: Spontaneous
  Country: US (occurrence: None)
  Receive Date: 20140627
  Receipt Date: 20140627
  Transmission Date: 20141212
  Serious: No
  Sender: FDA-Public Use
  Company Number: CABO-14004104

PATIENT
  Sex: Male

DRUGS (2)
  1. COMETRIQ (CARBOZANTINIB) CAPSULE [Suspect]
     Indication: MEDULLARY THYROID CANCER
     Dates: start: 2013
  2. ANTIHYPERTENSIVENES (ANTIHYPERTENSIVENES) [Concomitant]

REACTIONS (2)
  - Skin toxicity [None]
  - Blister [None]
